FAERS Safety Report 10192568 (Version 1)
Quarter: 2014Q2

REPORT INFORMATION
  Report Type: Other
  Country: GB (occurrence: GB)
  Receive Date: 20140523
  Receipt Date: 20140523
  Transmission Date: 20141212
  Serious: Yes (Other)
  Sender: FDA-Public Use
  Company Number: GB-CUBIST PHARMACEUTICAL, INC.-2014CBST000741

PATIENT
  Sex: 0

DRUGS (2)
  1. CUBICIN [Suspect]
     Indication: INFECTION
     Dosage: 8.7 MG/KG, UNK
     Route: 042
  2. CUBICIN [Suspect]
     Indication: OFF LABEL USE
     Dosage: 800 MG, UNK
     Route: 042

REACTIONS (1)
  - Pneumonitis [Unknown]
